FAERS Safety Report 14707302 (Version 1)
Quarter: 2018Q2

REPORT INFORMATION
  Report Type: Spontaneous
  Country: US (occurrence: US)
  Receive Date: 20180403
  Receipt Date: 20180403
  Transmission Date: 20180711
  Serious: Yes (Death)
  Sender: FDA-Public Use
  Company Number: US-BIOCOMPATIBLES UK LTD-2018BTG01590

PATIENT
  Age: 43 Year
  Sex: Male

DRUGS (7)
  1. CROFAB [Suspect]
     Active Substance: CROTALIDAE POLYVALENT IMMUNE FAB (OVINE)
     Indication: SNAKE BITE
     Dosage: 6 VIALS
     Dates: start: 2002
  2. STEROIDS [Concomitant]
     Active Substance: UNSPECIFIED INGREDIENT
     Indication: PRODUCT USED FOR UNKNOWN INDICATION
  3. DOPAMINE [Concomitant]
     Active Substance: DOPAMINE\DOPAMINE HYDROCHLORIDE
     Indication: HYPOTENSION
  4. DIPHENHYDRAMINE. [Concomitant]
     Active Substance: DIPHENHYDRAMINE
     Indication: PRODUCT USED FOR UNKNOWN INDICATION
  5. EPINEPHRINE. [Concomitant]
     Active Substance: EPINEPHRINE
     Indication: HYPOTENSION
  6. IGG ANTIVENOM [Suspect]
     Active Substance: IMMUNE GLOBULIN NOS
     Indication: SNAKE BITE
     Dosage: 26 VIALS
     Dates: start: 2002
  7. IGG ANTIVENOM [Suspect]
     Active Substance: IMMUNE GLOBULIN NOS
     Dosage: 7 VIALS

REACTIONS (4)
  - Epistaxis [Unknown]
  - Multiple organ dysfunction syndrome [Fatal]
  - Renal failure [Fatal]
  - Mucosal haemorrhage [Unknown]

NARRATIVE: CASE EVENT DATE: 2002
